FAERS Safety Report 11575003 (Version 1)
Quarter: 2015Q3

REPORT INFORMATION
  Report Type: Spontaneous
  Country: US (occurrence: None)
  Receive Date: 20150929
  Receipt Date: 20150929
  Transmission Date: 20151125
  Serious: Yes (Hospitalization)
  Sender: FDA-Public Use
  Company Number: None

PATIENT
  Age: 23 Year
  Sex: Male
  Weight: 67.13 kg

DRUGS (4)
  1. XIGDUO XR [Suspect]
     Active Substance: DAPAGLIFLOZIN PROPANEDIOL\METFORMIN HYDROCHLORIDE
     Indication: DIABETES MELLITUS
     Dosage: 1 PILL
     Route: 048
     Dates: start: 20141124, end: 20150827
  2. LEVEMIR [Concomitant]
     Active Substance: INSULIN DETEMIR
  3. HUMALOG [Concomitant]
     Active Substance: INSULIN LISPRO
  4. INSULIN [Concomitant]
     Active Substance: INSULIN NOS

REACTIONS (3)
  - Device failure [None]
  - Gastroenteritis viral [None]
  - Diabetic ketoacidosis [None]

NARRATIVE: CASE EVENT DATE: 20150827
